FAERS Safety Report 5529274-0 (Version None)
Quarter: 2007Q4

REPORT INFORMATION
  Report Type: 
  Country: None (occurrence: None)
  Receive Date: 20071129
  Receipt Date: 20070927
  Transmission Date: 20080405
  Serious: No
  Sender: FDA-Public Use
  Company Number: A0684690A

PATIENT
  Age: 31 Year
  Sex: Female

DRUGS (3)
  1. WELLBUTRIN SR [Suspect]
     Indication: ANXIETY
     Dosage: 100MG TWICE PER DAY
     Route: 048
  2. ZOLOFT [Concomitant]
  3. DESOGEN [Concomitant]

REACTIONS (1)
  - TREMOR [None]
